FAERS Safety Report 9819653 (Version 2)
Quarter: 2017Q1

REPORT INFORMATION
  Report Type: Spontaneous
  Country: CA (occurrence: CA)
  Receive Date: 20140115
  Receipt Date: 20170307
  Transmission Date: 20170429
  Serious: Yes (Other)
  Sender: FDA-Public Use
  Company Number: CA-MERCK-1401CAN004824

PATIENT
  Age: 73 Year
  Sex: Male

DRUGS (5)
  1. EZETROL [Suspect]
     Active Substance: EZETIMIBE
     Indication: LIPIDS ABNORMAL
     Dosage: 10 MG, QD
     Route: 048
     Dates: start: 20120501, end: 20130528
  2. FOSINOPRIL SODIUM. [Concomitant]
     Active Substance: FOSINOPRIL SODIUM
     Dosage: UNK
  3. GALANTAMINE. [Concomitant]
     Active Substance: GALANTAMINE
  4. INDAPAMIDE. [Concomitant]
     Active Substance: INDAPAMIDE
  5. INSULIN [Concomitant]
     Active Substance: INSULIN NOS

REACTIONS (2)
  - Blood creatinine increased [Not Recovered/Not Resolved]
  - Muscle atrophy [Not Recovered/Not Resolved]

NARRATIVE: CASE EVENT DATE: 20130521
